FAERS Safety Report 20370359 (Version 4)
Quarter: 2022Q1

REPORT INFORMATION
  Report Type: Spontaneous
  Country: CH (occurrence: CH)
  Receive Date: 20220124
  Receipt Date: 20220308
  Transmission Date: 20220423
  Serious: Yes (Death, Hospitalization, Disabling)
  Sender: FDA-Public Use
  Company Number: CH-CELGENE-CHE-20211204814

PATIENT
  Age: 79 Year
  Sex: Male

DRUGS (20)
  1. REVLIMID [Suspect]
     Active Substance: LENALIDOMIDE
     Indication: Plasma cell myeloma
     Route: 048
     Dates: start: 2020
  2. REVLIMID [Suspect]
     Active Substance: LENALIDOMIDE
     Dosage: 25 MILLIGRAM
     Route: 048
     Dates: start: 20211111, end: 20211124
  3. BORTEZOMIB [Suspect]
     Active Substance: BORTEZOMIB
     Indication: Plasma cell myeloma
     Route: 065
     Dates: start: 2020
  4. DEXAMETHASONE [Suspect]
     Active Substance: DEXAMETHASONE
     Indication: Plasma cell myeloma
     Route: 065
     Dates: start: 2020
  5. DEXAMETHASONE [Suspect]
     Active Substance: DEXAMETHASONE
     Dosage: 40 MILLIGRAM
     Route: 048
     Dates: start: 20211111, end: 20211221
  6. CARFILZOMIB [Concomitant]
     Active Substance: CARFILZOMIB
     Indication: Cardiac disorder
     Route: 065
  7. AMLODIPINE BESYLATE [Concomitant]
     Active Substance: AMLODIPINE BESYLATE
     Indication: Hypertension
     Dosage: 10 MILLIGRAM
     Route: 048
  8. CALCIUM\CHOLECALCIFEROL [Concomitant]
     Active Substance: CALCIUM\CHOLECALCIFEROL
     Indication: Product used for unknown indication
     Dosage: 500/1000 MILLIGRAM
     Route: 048
     Dates: start: 20211108
  9. ZOLEDRONIC ACID [Concomitant]
     Active Substance: ZOLEDRONIC ACID
     Indication: Osteolysis
     Dosage: 4 MILLIGRAM
     Route: 048
     Dates: start: 20211111
  10. BISOPROLOL [Concomitant]
     Active Substance: BISOPROLOL
     Indication: Cardiac disorder
     Dosage: 5 MILLIGRAM
     Route: 048
  11. PERINDOPRIL [Concomitant]
     Active Substance: PERINDOPRIL
     Indication: Hypertension
     Dosage: 5 MILLIGRAM
     Route: 048
  12. APIXABAN [Concomitant]
     Active Substance: APIXABAN
     Indication: Thrombosis prophylaxis
     Dosage: 5 MILLIGRAM
     Route: 048
     Dates: start: 20211111
  13. PHYTONADIONE [Concomitant]
     Active Substance: PHYTONADIONE
     Indication: International normalised ratio increased
     Dosage: 10 MILLIGRAM
     Route: 048
     Dates: start: 20211111, end: 20211118
  14. PANTOPRAZOLE SODIUM [Concomitant]
     Active Substance: PANTOPRAZOLE SODIUM
     Indication: Gastrooesophageal reflux disease
     Dosage: 40 MILLIGRAM
     Route: 048
     Dates: start: 20211113
  15. TORSEMIDE [Concomitant]
     Active Substance: TORSEMIDE
     Indication: Cardiac disorder
     Dosage: 10 MILLIGRAM
     Route: 048
  16. VALACYCLOVIR HYDROCHLORIDE [Concomitant]
     Active Substance: VALACYCLOVIR HYDROCHLORIDE
     Indication: Infection prophylaxis
     Dosage: 500 MILLIGRAM
     Route: 048
     Dates: start: 20211111
  17. VALERIAN [Concomitant]
     Active Substance: VALERIAN
     Indication: Insomnia
     Dosage: 500 MILLIGRAM
     Route: 048
     Dates: start: 20211111
  18. FUROSEMIDE [Concomitant]
     Active Substance: FUROSEMIDE
     Indication: Cardiac disorder
     Dosage: 40-80 MILLIGRAM
     Route: 048
     Dates: start: 20211114
  19. AMOXICILLIN\CLAVULANATE POTASSIUM [Concomitant]
     Active Substance: AMOXICILLIN\CLAVULANATE POTASSIUM
     Indication: Infection
     Dosage: 1.2 GRAMS
     Route: 048
     Dates: start: 20211108, end: 20211108
  20. CLINDAMYCIN [Concomitant]
     Active Substance: CLINDAMYCIN
     Indication: Infection
     Dosage: 500 MILLIGRAM
     Route: 048
     Dates: start: 20211108, end: 20211108

REACTIONS (2)
  - Death [Fatal]
  - Skin toxicity [Recovering/Resolving]

NARRATIVE: CASE EVENT DATE: 20211124
